FAERS Safety Report 7481307-0 (Version None)
Quarter: 2011Q2

REPORT INFORMATION
  Report Type: 
  Country: None (occurrence: None)
  Receive Date: 20110512
  Receipt Date: 20110512
  Transmission Date: 20111010
  Serious: No
  Sender: FDA-Public Use
  Company Number: None

PATIENT

DRUGS (1)
  1. ATIVAN [Suspect]

REACTIONS (5)
  - FEELING ABNORMAL [None]
  - ANXIETY [None]
  - HYPOAESTHESIA [None]
  - CONSTIPATION [None]
  - HYPERVENTILATION [None]
